FAERS Safety Report 7932294-X (Version None)
Quarter: 2011Q4

REPORT INFORMATION
  Report Type: 
  Country: None (occurrence: None)
  Receive Date: 20111121
  Receipt Date: 20111108
  Transmission Date: 20120403
  Serious: Yes (Other)
  Sender: FDA-Public Use
  Company Number: US-ELI_LILLY_AND_COMPANY-US201108006547

PATIENT
  Sex: Female

DRUGS (2)
  1. FORTEO [Suspect]
     Indication: OSTEOPOROSIS
     Dosage: 20 UG, QD
     Route: 058
     Dates: start: 20110401
  2. FORTEO [Suspect]
     Dosage: 20 UG, QD
     Route: 058
     Dates: end: 20110810

REACTIONS (5)
  - MIDDLE INSOMNIA [None]
  - BACK PAIN [None]
  - CONDITION AGGRAVATED [None]
  - MALAISE [None]
  - CHEMOTHERAPY [None]
